FAERS Safety Report 9690361 (Version 5)
Quarter: 2014Q3

REPORT INFORMATION
  Report Type: Spontaneous
  Country: CA (occurrence: CA)
  Receive Date: 20131115
  Receipt Date: 20140714
  Transmission Date: 20150326
  Serious: Yes (Hospitalization, Other)
  Sender: FDA-Public Use
  Company Number: CA-ASTELLAS-2013US011769

PATIENT
  Age: 50 Year
  Sex: Male

DRUGS (3)
  1. ADVAGRAF [Suspect]
     Active Substance: TACROLIMUS
     Indication: RENAL AND PANCREAS TRANSPLANT
     Route: 048
     Dates: start: 20130503
  2. ADVAGRAF [Suspect]
     Active Substance: TACROLIMUS
  3. ADVAGRAF [Suspect]
     Active Substance: TACROLIMUS
     Route: 048
     Dates: start: 201403

REACTIONS (16)
  - Leg amputation [Unknown]
  - Blood creatinine increased [Unknown]
  - Haemoglobin decreased [Unknown]
  - Balance disorder [Unknown]
  - Injury corneal [Recovered/Resolved]
  - Influenza like illness [Unknown]
  - Animal bite [Recovered/Resolved]
  - Fall [Recovered/Resolved]
  - Off label use [Unknown]
  - Hypotension [Unknown]
  - Kidney transplant rejection [Unknown]
  - Nausea [Unknown]
  - Head injury [Recovered/Resolved]
  - Hypophagia [Unknown]
  - Fall [Recovered/Resolved]
  - Pyrexia [Unknown]

NARRATIVE: CASE EVENT DATE: 201307
